FAERS Safety Report 10599880 (Version 1)
Quarter: 2014Q4

REPORT INFORMATION
  Report Type: Report from Study
  Country: US (occurrence: US)
  Receive Date: 20141121
  Receipt Date: 20141121
  Transmission Date: 20150529
  Serious: Yes (Hospitalization)
  Sender: FDA-Public Use
  Company Number: US-PFIZER INC-2014319421

PATIENT
  Age: 60 Year
  Sex: Female

DRUGS (2)
  1. DAPTOMYCIN. [Interacting]
     Active Substance: DAPTOMYCIN
     Indication: OSTEOMYELITIS
     Dosage: 5.8 MG/KG, (750 MG)
  2. ATORVASTATIN CALCIUM. [Suspect]
     Active Substance: ATORVASTATIN CALCIUM
     Dosage: 40 MG, UNK
     Route: 065

REACTIONS (3)
  - Blood creatine phosphokinase increased [Unknown]
  - Myalgia [Unknown]
  - Drug interaction [Unknown]
